FAERS Safety Report 4359563-7 (Version None)
Quarter: 2004Q2

REPORT INFORMATION
  Report Type: 
  Country: None (occurrence: None)
  Receive Date: 20040512
  Receipt Date: 20040426
  Transmission Date: 20050107
  Serious: Yes (Death, Hospitalization)
  Sender: FDA-Public Use
  Company Number: FR_040404004

PATIENT
  Age: 70 Year
  Sex: Male

DRUGS (2)
  1. XIGRIS (DROTRECOGIN ALFA)(ACTIVATED) [Suspect]
     Indication: MULTI-ORGAN FAILURE
     Dosage: 15 MG/9 OTHER
     Route: 050
     Dates: start: 20031215, end: 20031220
  2. XIGRIS (DROTRECOGIN ALFA)(ACTIVATED) [Suspect]
     Indication: SEPSIS
     Dosage: 15 MG/9 OTHER
     Route: 050
     Dates: start: 20031215, end: 20031220

REACTIONS (5)
  - DUODENAL ULCER [None]
  - MELAENA [None]
  - MULTI-ORGAN FAILURE [None]
  - NORMOCHROMIC NORMOCYTIC ANAEMIA [None]
  - STRESS ULCER [None]
